FAERS Safety Report 19149146 (Version 2)
Quarter: 2021Q2

REPORT INFORMATION
  Report Type: Report from Study
  Country: KR (occurrence: KR)
  Receive Date: 20210416
  Receipt Date: 20210428
  Transmission Date: 20210717
  Serious: Yes (Death)
  Sender: FDA-Public Use
  Company Number: KR-EXELIXIS-XL18421039437

PATIENT
  Age: 46 Year
  Sex: Female

DRUGS (20)
  1. CABOZANTINIB [Suspect]
     Active Substance: CABOZANTINIB
     Dosage: 20 MG, QD
     Route: 048
  2. CRAVIT [Concomitant]
     Active Substance: LEVOFLOXACIN
     Indication: PROPHYLAXIS
  3. MAGNESIUM OXIDE. [Concomitant]
     Active Substance: MAGNESIUM OXIDE
     Indication: CONSTIPATION
  4. CABOZANTINIB [Suspect]
     Active Substance: CABOZANTINIB
     Indication: NON-SMALL CELL LUNG CANCER METASTATIC
     Dosage: 40 MG, QD
     Route: 048
     Dates: start: 20210125
  5. GODEX [Concomitant]
     Indication: ALANINE AMINOTRANSFERASE INCREASED
  6. LAMINA?G [Concomitant]
     Indication: PROPHYLAXIS
  7. GODEX [Concomitant]
     Indication: ASPARTATE AMINOTRANSFERASE INCREASED
  8. ATEZOLIZUMAB. [Suspect]
     Active Substance: ATEZOLIZUMAB
     Indication: NON-SMALL CELL LUNG CANCER METASTATIC
     Dosage: 1200 MG, Q3WEEKS
     Route: 042
     Dates: start: 20210125
  9. PYRIDOXINE [Concomitant]
     Active Substance: PYRIDOXINE
  10. LOPERAMIDE [Concomitant]
     Active Substance: LOPERAMIDE
     Indication: DIARRHOEA
  11. TIROPA [Concomitant]
     Active Substance: TIROPRAMIDE
     Indication: ABDOMINAL PAIN
  12. SOLONDO [Concomitant]
     Active Substance: PREDNISOLONE
     Indication: PROPHYLAXIS
  13. URSA [Concomitant]
     Active Substance: URSODIOL
     Indication: ASPARTATE AMINOTRANSFERASE INCREASED
  14. IR CODON [Concomitant]
     Active Substance: OXYCODONE HYDROCHLORIDE
  15. LANSTON [Concomitant]
     Active Substance: LANSOPRAZOLE
     Indication: PROPHYLAXIS
  16. URSA [Concomitant]
     Active Substance: URSODIOL
     Indication: ALANINE AMINOTRANSFERASE INCREASED
  17. FOTAGEL [Concomitant]
     Indication: DIARRHOEA
  18. DURICEF [Concomitant]
     Active Substance: CEFADROXIL
     Indication: PROPHYLAXIS
  19. SEPTRIN [Concomitant]
     Active Substance: SULFAMETHOXAZOLE\TRIMETHOPRIM
     Indication: PROPHYLAXIS
  20. TYLENOL [Concomitant]
     Active Substance: ACETAMINOPHEN
     Indication: PROPHYLAXIS

REACTIONS (2)
  - Drug-induced liver injury [Unknown]
  - Pneumonitis [Fatal]

NARRATIVE: CASE EVENT DATE: 20210408
